FAERS Safety Report 6342587-8 (Version None)
Quarter: 2009Q3

REPORT INFORMATION
  Report Type: 
  Country: None (occurrence: None)
  Receive Date: 20090908
  Receipt Date: 20090828
  Transmission Date: 20100115
  Serious: Yes (Hospitalization, Other)
  Sender: FDA-Public Use
  Company Number: US-CELGENEUS-163-C5013-08061571

PATIENT
  Sex: Male
  Weight: 86.487 kg

DRUGS (13)
  1. CC-5013 [Suspect]
     Route: 048
     Dates: start: 20070430, end: 20080623
  2. ASPIRIN [Concomitant]
     Route: 048
     Dates: start: 20070430
  3. ASPIRIN [Concomitant]
     Indication: PROPHYLAXIS
  4. FAMVIR [Concomitant]
     Indication: VIRAL INFECTION
     Route: 048
     Dates: start: 20070430
  5. FAMVIR [Concomitant]
     Indication: PROPHYLAXIS
  6. METFORMIN HCL [Concomitant]
     Route: 048
     Dates: start: 20070430
  7. METRONIDAZOLE [Concomitant]
     Indication: ANTI-INFECTIVE THERAPY
     Dosage: 1% EX GEL
     Route: 061
     Dates: start: 20080520
  8. AUGMENTIN [Concomitant]
     Indication: STAPHYLOCOCCAL INFECTION
     Dosage: 500-125 MG
     Route: 048
  9. AUGMENTIN [Concomitant]
     Indication: ABSCESS
  10. BACTRIM [Concomitant]
     Indication: DRUG USE FOR UNKNOWN INDICATION
     Dosage: 400-80 MG
     Route: 048
  11. DIFLUCAN [Concomitant]
     Indication: DRUG USE FOR UNKNOWN INDICATION
     Route: 048
  12. NEXIUM [Concomitant]
     Indication: DRUG USE FOR UNKNOWN INDICATION
     Route: 048
  13. PREDNISONE TAB [Concomitant]
     Indication: DRUG USE FOR UNKNOWN INDICATION
     Route: 048

REACTIONS (2)
  - FEBRILE NEUTROPENIA [None]
  - POLYMYOSITIS [None]
